FAERS Safety Report 21769071 (Version 1)
Quarter: 2022Q4

REPORT INFORMATION
  Report Type: Report from Study
  Country: US (occurrence: US)
  Receive Date: 20221222
  Receipt Date: 20221222
  Transmission Date: 20230113
  Serious: Yes (Other)
  Sender: FDA-Public Use
  Company Number: US-ABBVIE-4246650

PATIENT
  Age: 22 Year
  Sex: Male
  Weight: 72.5 kg

DRUGS (3)
  1. SKYRIZI [Suspect]
     Active Substance: RISANKIZUMAB-RZAA
     Indication: Psoriasis
     Dosage: STRENGTH-150 MG
     Route: 058
     Dates: start: 202204, end: 202204
  2. SKYRIZI [Suspect]
     Active Substance: RISANKIZUMAB-RZAA
     Indication: Psoriatic arthropathy
     Dosage: STRENGTH-150 MG
     Route: 058
     Dates: start: 202207
  3. SKYRIZI [Suspect]
     Active Substance: RISANKIZUMAB-RZAA
     Dosage: STRENGTH-150 MG
     Route: 058
     Dates: start: 202203, end: 202203

REACTIONS (1)
  - Toothache [Recovered/Resolved]

NARRATIVE: CASE EVENT DATE: 20221101
